FAERS Safety Report 24714550 (Version 1)
Quarter: 2024Q4

REPORT INFORMATION
  Report Type: Spontaneous
  Country: US (occurrence: US)
  Receive Date: 20241209
  Receipt Date: 20241209
  Transmission Date: 20250115
  Serious: Yes (Hospitalization, Other)
  Sender: RANBAXY
  Company Number: US-SUN PHARMACEUTICAL INDUSTRIES LTD-2024R1-483284

PATIENT
  Sex: Male

DRUGS (5)
  1. CLINDAMYCIN [Suspect]
     Active Substance: CLINDAMYCIN
     Indication: Amniotic cavity infection
     Dosage: UNK
     Route: 064
  2. AMPICILLIN [Suspect]
     Active Substance: AMPICILLIN
     Indication: Amniotic cavity infection
     Dosage: UNK
     Route: 064
  3. BETAMETHASONE [Suspect]
     Active Substance: BETAMETHASONE
     Indication: Maternal therapy to enhance foetal lung maturity
     Dosage: UNK
     Route: 064
  4. GENTAMICIN [Suspect]
     Active Substance: GENTAMICIN
     Indication: Amniotic cavity infection
     Dosage: UNK
     Route: 064
  5. URSODIOL [Suspect]
     Active Substance: URSODIOL
     Indication: Acute fatty liver of pregnancy
     Dosage: 300 MILLIGRAM, TID
     Route: 064

REACTIONS (3)
  - Amniotic cavity infection [Unknown]
  - Foetal exposure during pregnancy [Unknown]
  - Premature baby [Unknown]
